FAERS Safety Report 8917534 (Version 3)
Quarter: 2014Q1

REPORT INFORMATION
  Report Type: Spontaneous
  Country: US (occurrence: US)
  Receive Date: 20121120
  Receipt Date: 20140318
  Transmission Date: 20141002
  Serious: Yes (Hospitalization, Other)
  Sender: FDA-Public Use
  Company Number: US-009507513-1211USA007604

PATIENT
  Sex: Female
  Weight: 68.27 kg

DRUGS (3)
  1. FOSAMAX [Suspect]
     Indication: OSTEOPOROSIS
     Dosage: 10 MG, QD
     Route: 048
     Dates: start: 199511, end: 20080212
  2. FOSAMAX [Suspect]
     Indication: OSTEOPENIA
     Dosage: 70 MG, QW
     Route: 048
     Dates: start: 200010, end: 200802
  3. VITAMINS (UNSPECIFIED) [Concomitant]
     Dosage: 1 DF, QD
     Dates: start: 1998

REACTIONS (13)
  - Intramedullary rod insertion [Unknown]
  - Femur fracture [Unknown]
  - Low turnover osteopathy [Unknown]
  - Anxiety [Unknown]
  - Morton^s neuralgia [Unknown]
  - Bartholin^s cyst [Unknown]
  - Adverse event [Unknown]
  - Adenotonsillectomy [Unknown]
  - Drug administration error [Unknown]
  - Neurectomy [Unknown]
  - Spinal osteoarthritis [Unknown]
  - Urinary tract disorder [Unknown]
  - Musculoskeletal pain [Unknown]
